FAERS Safety Report 25330274 (Version 1)
Quarter: 2025Q2

REPORT INFORMATION
  Report Type: Spontaneous
  Country: GB (occurrence: GB)
  Receive Date: 20250519
  Receipt Date: 20250519
  Transmission Date: 20250716
  Serious: Yes (Hospitalization)
  Sender: MYLAN
  Company Number: None

PATIENT
  Age: 57 Year
  Sex: Male

DRUGS (22)
  1. ZOLPIDEM [Suspect]
     Active Substance: ZOLPIDEM TARTRATE
     Indication: Product used for unknown indication
     Dosage: 10 MILLIGRAM, QD
  2. ZOLPIDEM [Suspect]
     Active Substance: ZOLPIDEM TARTRATE
     Dosage: 10 MILLIGRAM, PM (PRN, NOT USED)
  3. PREGABALIN [Suspect]
     Active Substance: PREGABALIN
     Indication: Product used for unknown indication
  4. MIRTAZAPINE [Concomitant]
     Active Substance: MIRTAZAPINE
     Dosage: 15 MILLIGRAM, PM (ON)
  5. TAMSULOSIN [Concomitant]
     Active Substance: TAMSULOSIN
     Dosage: 400 MICROGRAM, QD (OD)
  6. OMEPRAZOLE [Concomitant]
     Active Substance: OMEPRAZOLE
     Dosage: 2 DOSAGE FORM, QD (TWO TO BE TAKEN EACH DAY)
  7. FAMOTIDINE [Concomitant]
     Active Substance: FAMOTIDINE
     Dosage: 20 MILLIGRAM, BID (BD)
  8. CANDESARTAN [Concomitant]
     Active Substance: CANDESARTAN
     Dosage: 8 MILLIGRAM, AM (OM)
  9. CANDESARTAN [Concomitant]
     Active Substance: CANDESARTAN
     Dosage: 4 MILLIGRAM, QD (ONE TO BE TAKEN EACH DAY - HELD (AKI))
  10. FERROUS SULFATE [Concomitant]
     Active Substance: FERROUS SULFATE
  11. SERTRALINE [Concomitant]
     Active Substance: SERTRALINE HYDROCHLORIDE
     Dosage: 100 MILLIGRAM, QD (PRN, NOT USED)
  12. SERTRALINE [Concomitant]
     Active Substance: SERTRALINE HYDROCHLORIDE
     Dosage: 50 MILLIGRAM, QD (OD)
  13. ACETAMINOPHEN [Concomitant]
     Active Substance: ACETAMINOPHEN
     Dosage: 1000 MILLIGRAM, QID (PRN)
  14. LACTULOSE [Concomitant]
     Active Substance: LACTULOSE
     Dosage: 20 MILLILITER, TID (TDS)
  15. DIAZEPAM [Concomitant]
     Active Substance: DIAZEPAM
     Dosage: 10 MILLIGRAM, PM (ON)
  16. CHLORPROMAZINE [Concomitant]
     Active Substance: CHLORPROMAZINE
     Dosage: 50 MILLIGRAM, TID (PRN, NOT USED)
  17. CHLORPROMAZINE [Concomitant]
     Active Substance: CHLORPROMAZINE
     Dosage: 50 MILLIGRAM, TID (TAKE ONE 3 TIMES/DAY)
  18. ATORVASTATIN [Concomitant]
     Active Substance: ATORVASTATIN
     Dosage: 40 MILLIGRAM, AM (OM)
  19. VITAMIN B [Concomitant]
     Active Substance: VITAMIN B
     Indication: Wernicke^s encephalopathy
     Dosage: 2 DOSAGE FORM, TID (2 PAIRS TDS, HAD 1 DOSE REMAINING)
  20. CHLORDIAZEPOXIDE [Concomitant]
     Active Substance: CHLORDIAZEPOXIDE
     Indication: Alcohol withdrawal syndrome
  21. VITAMIN C [Concomitant]
     Active Substance: ASCORBIC ACID
     Indication: Wernicke^s encephalopathy
     Dosage: 2 DOSAGE FORM, TID (2 PAIRS TDS, HAD 1 DOSE REMAINING)
  22. FERROUS FUMARATE [Concomitant]
     Active Substance: FERROUS FUMARATE
     Dosage: 210 MILLIGRAM, QD (OD)

REACTIONS (2)
  - Miosis [Unknown]
  - Somnolence [Unknown]
